FAERS Safety Report 7289866-8 (Version None)
Quarter: 2011Q1

REPORT INFORMATION
  Report Type: 
  Country: None (occurrence: None)
  Receive Date: 20110214
  Receipt Date: 20110208
  Transmission Date: 20110831
  Serious: Yes (Hospitalization)
  Sender: FDA-Public Use
  Company Number: GB-SP-2011-00556

PATIENT
  Age: 70 Year
  Sex: Male

DRUGS (11)
  1. LOSARTAN POTASSIUM [Concomitant]
  2. FINASTERIDE [Concomitant]
  3. SLOZEM [Concomitant]
  4. TRAMADOL HYDROCHLORIDE [Concomitant]
  5. CIPROFLOXACIN [Concomitant]
  6. DOCUSATE SODIUM [Concomitant]
  7. OMEPRAZOLE [Concomitant]
  8. PARACETAMOL [Concomitant]
  9. IMMUCYST [Suspect]
     Indication: BLADDER CANCER
     Dosage: NOT REPORTED
     Route: 065
     Dates: start: 20091119, end: 20101201
  10. TAMSULOSIN [Concomitant]
  11. ENOXAPARIN SODIUM [Concomitant]

REACTIONS (4)
  - TENDERNESS [None]
  - ORCHITIS NONINFECTIVE [None]
  - TUBERCULOSIS [None]
  - ORCHITIS [None]
